FAERS Safety Report 6888416-5 (Version None)
Quarter: 2010Q3

REPORT INFORMATION
  Report Type: 
  Country: None (occurrence: None)
  Receive Date: 20100730
  Receipt Date: 20100719
  Transmission Date: 20110219
  Serious: Yes (Hospitalization, Other)
  Sender: FDA-Public Use
  Company Number: US-ELI_LILLY_AND_COMPANY-US201006004018

PATIENT
  Sex: Female

DRUGS (8)
  1. FORTEO [Suspect]
     Indication: OSTEOPOROSIS
     Dosage: 20 UG, DAILY (1/D)
     Dates: start: 20100401
  2. PREVACID [Concomitant]
     Dosage: 30 MG, DAILY (1/D)
  3. DEPO-PROVERA [Concomitant]
  4. ACTEMRA [Concomitant]
     Indication: ARTHRITIS
  5. PHENERGAN [Concomitant]
     Indication: NAUSEA
     Dosage: UNK, AS NEEDED
  6. IRON [Concomitant]
  7. RESTORIL [Concomitant]
     Indication: INSOMNIA
  8. FISH OIL [Concomitant]

REACTIONS (21)
  - ABDOMINAL PAIN UPPER [None]
  - AMNESIA [None]
  - ARTHRALGIA [None]
  - ARTHROPATHY [None]
  - BACK PAIN [None]
  - BLOOD CALCIUM DECREASED [None]
  - CLAVICLE FRACTURE [None]
  - CONTUSION [None]
  - CONVULSION [None]
  - EATING DISORDER [None]
  - GAIT DISTURBANCE [None]
  - HOSPITALISATION [None]
  - INJECTION SITE PAIN [None]
  - INTERVERTEBRAL DISC DEGENERATION [None]
  - LETHARGY [None]
  - OEDEMA [None]
  - PAIN [None]
  - PETIT MAL EPILEPSY [None]
  - STRESS [None]
  - UPPER LIMB FRACTURE [None]
  - VITAMIN D DECREASED [None]
